FAERS Safety Report 14355061 (Version 2)
Quarter: 2018Q1

REPORT INFORMATION
  Report Type: Report from Study
  Country: FR (occurrence: FR)
  Receive Date: 20180105
  Receipt Date: 20180118
  Transmission Date: 20180509
  Serious: Yes (Hospitalization, Disabling)
  Sender: FDA-Public Use
  Company Number: FR-009507513-1712FRA013291

PATIENT
  Age: 32 Year
  Sex: Female
  Weight: 84 kg

DRUGS (2)
  1. TRUVADA [Suspect]
     Active Substance: EMTRICITABINE\TENOFOVIR DISOPROXIL FUMARATE
     Indication: HIV INFECTION
     Dosage: 1 TAB/CAPS DAILY
     Route: 065
     Dates: start: 201705, end: 201711
  2. ISENTRESS [Suspect]
     Active Substance: RALTEGRAVIR POTASSIUM
     Indication: HIV INFECTION
     Dosage: 400 MG, QD
     Route: 065
     Dates: start: 201705, end: 201711

REACTIONS (4)
  - Hepatocellular injury [Recovered/Resolved]
  - Caesarean section [Recovered/Resolved with Sequelae]
  - Maternal exposure during pregnancy [Recovered/Resolved]
  - Abortion induced [Recovered/Resolved with Sequelae]

NARRATIVE: CASE EVENT DATE: 201711
